FAERS Safety Report 25460574 (Version 1)
Quarter: 2025Q2

REPORT INFORMATION
  Report Type: Spontaneous
  Country: US (occurrence: US)
  Receive Date: 20250620
  Receipt Date: 20250620
  Transmission Date: 20250716
  Serious: No
  Sender: ROCHE
  Company Number: US-ROCHE-10000315086

PATIENT
  Age: 80 Year
  Sex: Female

DRUGS (3)
  1. XOLAIR [Suspect]
     Active Substance: OMALIZUMAB
     Indication: Idiopathic urticaria
     Dosage: STRENGTH: 150 MG
     Route: 058
     Dates: start: 202411
  2. RYCLORA [Concomitant]
     Active Substance: DEXCHLORPHENIRAMINE MALEATE
  3. STERILE WATER FOR INJECTION [Concomitant]
     Active Substance: WATER

REACTIONS (3)
  - Urticaria [Unknown]
  - Pruritus [Unknown]
  - Idiopathic urticaria [Unknown]

NARRATIVE: CASE EVENT DATE: 20250601
